FAERS Safety Report 7197218-4 (Version None)
Quarter: 2010Q4

REPORT INFORMATION
  Report Type: 
  Country: None (occurrence: None)
  Receive Date: 20101224
  Receipt Date: 20101214
  Transmission Date: 20110411
  Serious: Yes (Hospitalization, Other)
  Sender: FDA-Public Use
  Company Number: PHHY2010US66015

PATIENT
  Sex: Male

DRUGS (1)
  1. GLEEVEC [Suspect]

REACTIONS (6)
  - CEREBROVASCULAR ACCIDENT [None]
  - FLUID RETENTION [None]
  - METASTASIS [None]
  - OEDEMA PERIPHERAL [None]
  - THROMBOSIS [None]
  - WEIGHT INCREASED [None]
